FAERS Safety Report 5027786-X (Version None)
Quarter: 2006Q2

REPORT INFORMATION
  Report Type: 
  Country: None (occurrence: None)
  Receive Date: 20060614
  Receipt Date: 20060614
  Transmission Date: 20061013
  Serious: Yes (Death, Hospitalization)
  Sender: FDA-Public Use
  Company Number: None

PATIENT
  Sex: Female
  Weight: 78.2 kg

DRUGS (4)
  1. CYCLOPHOSPHAMIDE [Suspect]
     Dosage: 1050 MG
     Dates: start: 20060530
  2. DOXORUBICIN HYDROCHLORIDE [Suspect]
     Dosage: 106 MG
     Dates: start: 20060530
  3. PLAVIX [Concomitant]
  4. ASPIRIN [Concomitant]

REACTIONS (20)
  - ABDOMINAL PAIN [None]
  - BACTERIAL INFECTION [None]
  - BOWEL SOUNDS ABNORMAL [None]
  - COLONIC PERFORATION POSTOPERATIVE [None]
  - DISSEMINATED INTRAVASCULAR COAGULATION [None]
  - DIVERTICULUM INTESTINAL HAEMORRHAGIC [None]
  - GASTROINTESTINAL NECROSIS [None]
  - HAEMATOCHEZIA [None]
  - HAEMOGLOBIN DECREASED [None]
  - HEPATORENAL SYNDROME [None]
  - LEUKOPENIA [None]
  - NEUTROPHIL PERCENTAGE INCREASED [None]
  - OPERATIVE HAEMORRHAGE [None]
  - PLATELET COUNT INCREASED [None]
  - PROTHROMBIN TIME SHORTENED [None]
  - PUPILLARY REFLEX IMPAIRED [None]
  - RECTAL HAEMORRHAGE [None]
  - RENAL FAILURE [None]
  - SEPSIS [None]
  - WHITE BLOOD CELL COUNT INCREASED [None]
